FAERS Safety Report 4530028-2 (Version None)
Quarter: 2004Q4

REPORT INFORMATION
  Report Type: 
  Country: None (occurrence: None)
  Receive Date: 20041214
  Receipt Date: 20041201
  Transmission Date: 20050328
  Serious: Yes (Hospitalization, Other)
  Sender: FDA-Public Use
  Company Number: USA-2003-0010587

PATIENT
  Age: 28 Year
  Sex: Male
  Weight: 111.6 kg

DRUGS (19)
  1. OXYCONTIN [Suspect]
     Indication: PAIN
     Dosage: SEE IMAGE
     Route: 048
     Dates: end: 20030501
  2. OXYCODONEHDYROCHLORIDE (SIMILAR TO NDA 20-553) (OXYCODONE HYDROCHLORID [Concomitant]
  3. MORPHINE SULFATE [Concomitant]
  4. OXYFAST (OXYCODONE HDYROCHLORIDE) [Concomitant]
  5. NEURONTIN [Concomitant]
  6. NORCO [Concomitant]
  7. ELVAIL (AMITRIPTYLINE HYDROCHLORIDE) [Concomitant]
  8. CELEXA [Concomitant]
  9. ZOLOFT [Concomitant]
  10. ZANAFLEX [Concomitant]
  11. ZONEGRAN [Concomitant]
  12. TOPAMAX [Concomitant]
  13. BEXTRA [Concomitant]
  14. LORTAB [Concomitant]
  15. WELLBUTRIN SR [Concomitant]
  16. XANAX [Concomitant]
  17. VICOPROFEN [Concomitant]
  18. PAMELOR [Concomitant]
  19. SONATA [Concomitant]

REACTIONS (23)
  - ANXIETY [None]
  - BACK PAIN [None]
  - BONE GRAFT [None]
  - CONSTIPATION [None]
  - DEPRESSION [None]
  - DRUG ABUSER [None]
  - DRUG DEPENDENCE [None]
  - DRUG INEFFECTIVE [None]
  - EMOTIONAL DISTRESS [None]
  - FALL [None]
  - HYPOAESTHESIA [None]
  - INSOMNIA [None]
  - INTERVERTEBRAL DISC DEGENERATION [None]
  - INTERVERTEBRAL DISC PROTRUSION [None]
  - MUSCLE SPASMS [None]
  - MUSCULAR WEAKNESS [None]
  - PAIN [None]
  - PAIN IN EXTREMITY [None]
  - PYELONEPHRITIS [None]
  - SEDATION [None]
  - SEXUAL DYSFUNCTION [None]
  - TREATMENT NONCOMPLIANCE [None]
  - URINARY TRACT INFECTION [None]
